FAERS Safety Report 21847239 (Version 2)
Quarter: 2023Q1

REPORT INFORMATION
  Report Type: Spontaneous
  Country: DE (occurrence: DE)
  Receive Date: 20230111
  Receipt Date: 20230331
  Transmission Date: 20230418
  Serious: Yes (Hospitalization, Other)
  Sender: FDA-Public Use
  Company Number: DE-ABBVIE-4228004

PATIENT
  Age: 44 Year
  Sex: Female

DRUGS (12)
  1. BUPIVACAINE [Suspect]
     Active Substance: BUPIVACAINE
     Indication: Product used for unknown indication
     Dosage: UNK
     Route: 014
  2. RINVOQ [Suspect]
     Active Substance: UPADACITINIB
     Indication: Psoriatic arthropathy
     Dosage: 15 MILLIGRAM, ONCE A DAY
     Route: 048
     Dates: start: 20211029, end: 20220105
  3. RINVOQ [Suspect]
     Active Substance: UPADACITINIB
     Dosage: 15 MILLIGRAM, ONCE A DAY
     Route: 048
     Dates: start: 20220209
  4. SIMPONI [Suspect]
     Active Substance: GOLIMUMAB
     Indication: Product used for unknown indication
     Dosage: 50 MILLIGRAM, 4 WEEK
     Route: 065
     Dates: start: 20220209
  5. TREMFYA [Suspect]
     Active Substance: GUSELKUMAB
     Indication: Product used for unknown indication
     Dosage: 100 MILLIGRAM, 8 WEEK
     Route: 065
     Dates: start: 20220309
  6. INFLIXIMAB [Suspect]
     Active Substance: INFLIXIMAB
     Indication: Product used for unknown indication
     Dosage: 800 MILLIGRAM, 2 WEEK
     Route: 065
     Dates: start: 20220106, end: 20220120
  7. BISOPROLOL [Concomitant]
     Active Substance: BISOPROLOL
     Indication: Product used for unknown indication
     Dosage: UNK
     Route: 065
  8. ETORICOXIB [Concomitant]
     Active Substance: ETORICOXIB
     Indication: Product used for unknown indication
     Dosage: 120 MILLIGRAM (0.14 WEEK)
     Route: 065
     Dates: start: 20211214, end: 20220218
  9. ETORICOXIB [Concomitant]
     Active Substance: ETORICOXIB
     Dosage: 120 MILLIGRAM, ONCE A DAY
     Route: 065
     Dates: start: 20220227
  10. PANTOPRAZOLE [Concomitant]
     Active Substance: PANTOPRAZOLE
     Indication: Product used for unknown indication
     Dosage: UNK
     Route: 065
  11. STELARA [Concomitant]
     Active Substance: USTEKINUMAB
     Indication: Product used for unknown indication
     Dosage: 45 MILLIGRAM, 12 WEEKS
     Route: 065
     Dates: start: 20211223, end: 20211223
  12. CALCIUM\ERGOCALCIFEROL [Concomitant]
     Active Substance: CALCIUM\ERGOCALCIFEROL
     Indication: Product used for unknown indication
     Dosage: UNK
     Route: 065

REACTIONS (7)
  - Psoriatic arthropathy [Recovered/Resolved]
  - Staphylococcal infection [Unknown]
  - Arthralgia [Recovered/Resolved]
  - Drug hypersensitivity [Recovered/Resolved]
  - Drug eruption [Recovered/Resolved]
  - Dyspnoea [Unknown]
  - Pruritus [Unknown]

NARRATIVE: CASE EVENT DATE: 20220101
